FAERS Safety Report 17400193 (Version 1)
Quarter: 2020Q1

REPORT INFORMATION
  Report Type: Spontaneous
  Country: US (occurrence: US)
  Receive Date: 20200209
  Receipt Date: 20200209
  Transmission Date: 20200409
  Serious: Yes (Life-Threatening, Hospitalization)
  Sender: FDA-Public Use
  Company Number: None

PATIENT
  Age: 54 Year
  Sex: Male
  Weight: 111 kg

DRUGS (1)
  1. LISINOPRIL. [Suspect]
     Active Substance: LISINOPRIL
     Indication: HYPERTENSION
     Route: 048
     Dates: start: 20191026

REACTIONS (6)
  - Enlarged uvula [None]
  - Urticaria [None]
  - Pruritus [None]
  - Swollen tongue [None]
  - Dysphagia [None]
  - Pharyngeal swelling [None]

NARRATIVE: CASE EVENT DATE: 20200115
